FAERS Safety Report 8028158-6 (Version None)
Quarter: 2012Q1

REPORT INFORMATION
  Report Type: 
  Country: None (occurrence: None)
  Receive Date: 20120106
  Receipt Date: 20120103
  Transmission Date: 20120608
  Serious: Yes (Other)
  Sender: FDA-Public Use
  Company Number: US-BAYER-2011-104068

PATIENT
  Age: 38 Year
  Sex: Female
  Weight: 93.878 kg

DRUGS (2)
  1. MIRENA [Suspect]
     Indication: CONTRACEPTION
     Dosage: 20 MCG/24HR, CONT
     Route: 015
     Dates: start: 20110716, end: 20111019
  2. MIRENA [Suspect]
     Indication: VAGINAL HAEMORRHAGE

REACTIONS (3)
  - DEVICE DISLOCATION [None]
  - GENITAL HAEMORRHAGE [None]
  - PAIN [None]
